FAERS Safety Report 6813552-9 (Version None)
Quarter: 2010Q3

REPORT INFORMATION
  Report Type: 
  Country: None (occurrence: None)
  Receive Date: 20100701
  Receipt Date: 20100623
  Transmission Date: 20110219
  Serious: Yes (Death, Hospitalization, Other)
  Sender: FDA-Public Use
  Company Number: US-PFIZER INC-2010066008

PATIENT
  Sex: Female
  Weight: 70.295 kg

DRUGS (1)
  1. REVATIO [Suspect]
     Indication: PULMONARY ARTERIAL HYPERTENSION
     Dosage: 40 MG, 3X/DAY
     Dates: start: 20090901

REACTIONS (21)
  - ANAEMIA [None]
  - BLOOD CREATINE PHOSPHOKINASE INCREASED [None]
  - CARDIAC FAILURE ACUTE [None]
  - DEATH [None]
  - DYSPNOEA [None]
  - DYSURIA [None]
  - FLUID OVERLOAD [None]
  - HYPERAMMONAEMIA [None]
  - HYPERCALCAEMIA [None]
  - IRON DEFICIENCY [None]
  - MENTAL STATUS CHANGES [None]
  - METABOLIC ENCEPHALOPATHY [None]
  - MITRAL VALVE CALCIFICATION [None]
  - MITRAL VALVE INCOMPETENCE [None]
  - NEUROLOGICAL SYMPTOM [None]
  - OCCULT BLOOD POSITIVE [None]
  - POLYCHROMASIA [None]
  - POLYURIA [None]
  - RENAL FAILURE ACUTE [None]
  - TRICUSPID VALVE INCOMPETENCE [None]
  - URINARY TRACT INFECTION [None]
